FAERS Safety Report 4600407-3 (Version None)
Quarter: 2005Q1

REPORT INFORMATION
  Report Type: 
  Country: None (occurrence: None)
  Receive Date: 20050127
  Receipt Date: 20041020
  Transmission Date: 20050727
  Serious: No
  Sender: FDA-Public Use
  Company Number: USA041081676

PATIENT
  Age: 15 Year
  Sex: Male
  Weight: 52 kg

DRUGS (3)
  1. STRATTERA [Suspect]
     Indication: DISTURBANCE IN ATTENTION
     Dosage: 40 MG DAY
     Dates: start: 20040901
  2. TRILEPTAL [Concomitant]
  3. SEROQUEL [Concomitant]

REACTIONS (4)
  - AGGRESSION [None]
  - DISTURBANCE IN ATTENTION [None]
  - LIVING IN RESIDENTIAL INSTITUTION [None]
  - PSYCHOMOTOR HYPERACTIVITY [None]
